FAERS Safety Report 19252094 (Version 4)
Quarter: 2025Q4

REPORT INFORMATION
  Report Type: Spontaneous
  Country: US (occurrence: US)
  Receive Date: 20210513
  Receipt Date: 20251105
  Transmission Date: 20260117
  Serious: Yes (Hospitalization, Other)
  Sender: NOVO NORDISK
  Company Number: US-NOVOPROD-810181

PATIENT
  Age: 65 Year
  Sex: Male

DRUGS (6)
  1. LEVEMIR [Suspect]
     Active Substance: INSULIN DETEMIR
     Indication: Diabetes mellitus
     Dosage: UNK
     Dates: start: 2006
  2. LEVEMIR [Suspect]
     Active Substance: INSULIN DETEMIR
     Dosage: 64 IU
     Route: 058
     Dates: start: 2006
  3. LEVEMIR [Suspect]
     Active Substance: INSULIN DETEMIR
     Dosage: 42 IU, QD
     Route: 058
  4. TASIGNA [Suspect]
     Active Substance: NILOTINIB
     Indication: Chronic myeloid leukaemia
     Dosage: UNK
  5. METFORMIN HYDROCHLORIDE [Suspect]
     Active Substance: METFORMIN HYDROCHLORIDE
     Indication: Product used for unknown indication
     Dosage: 500 MG, QD
     Route: 048
     Dates: start: 2018
  6. METFORMIN HYDROCHLORIDE [Suspect]
     Active Substance: METFORMIN HYDROCHLORIDE
     Dosage: 1000 MG, QD
     Route: 048

REACTIONS (7)
  - Atrioventricular block second degree [Not Recovered/Not Resolved]
  - Urinary tract infection [Recovered/Resolved]
  - Brain fog [Recovered/Resolved]
  - Blood potassium decreased [Unknown]
  - Malaise [Recovered/Resolved]
  - Fatigue [Recovered/Resolved]
  - Product storage error [Unknown]

NARRATIVE: CASE EVENT DATE: 20190101
